FAERS Safety Report 25852576 (Version 1)
Quarter: 2025Q3

REPORT INFORMATION
  Report Type: Spontaneous
  Country: US (occurrence: None)
  Receive Date: 20250925
  Receipt Date: 20250925
  Transmission Date: 20251020
  Serious: Yes (Other)
  Sender: FDA-CTU
  Company Number: None

PATIENT
  Age: 9 Year
  Sex: Female
  Weight: 28.3 kg

DRUGS (7)
  1. COSYNTROPIN [Suspect]
     Active Substance: COSYNTROPIN
     Indication: Short stature
     Route: 030
  2. COSYNTROPIN [Suspect]
     Active Substance: COSYNTROPIN
     Indication: ACTH stimulation test
  3. BUDESONIDE [Concomitant]
     Active Substance: BUDESONIDE
  4. Albuterol neb/inhaler [Concomitant]
  5. Montelukast 5 mg daily [Concomitant]
  6. Cetirizine 5 mg daily [Concomitant]
  7. Fluticasone 110 mcg HFA inhaler [Concomitant]

REACTIONS (2)
  - Post procedural complication [None]
  - Rash [None]

NARRATIVE: CASE EVENT DATE: 20250911
